FAERS Safety Report 8770299 (Version 1)
Quarter: 2012Q4

REPORT INFORMATION
  Report Type: Report from Study
  Country: US (occurrence: US)
  Receive Date: 20120906
  Receipt Date: 20120906
  Transmission Date: 20130627
  Serious: Yes (Other)
  Sender: FDA-Public Use
  Company Number: US-ABBOTT-12P-163-0974346-00

PATIENT
  Age: 58 None
  Sex: Female
  Weight: 59.93 kg

DRUGS (6)
  1. HUMIRA 40 MG/0.8 ML PEN [Suspect]
     Indication: RHEUMATOID ARTHRITIS
     Dosage: one dose administered
     Dates: start: 20120510, end: 20120510
  2. TRAMADOL [Concomitant]
     Indication: PAIN
  3. BUPROPIONE [Concomitant]
     Indication: PRODUCT USED FOR UNKNOWN INDICATION
     Route: 065
  4. ARAVA [Concomitant]
     Indication: RHEUMATOID ARTHRITIS
     Route: 065
  5. BENADRYL [Concomitant]
     Indication: HYPERSENSITIVITY
     Route: 065
  6. MEDICATION FOR ITCHING [Concomitant]
     Indication: HYPERSENSITIVITY

REACTIONS (6)
  - Rash [Recovered/Resolved]
  - Asthenia [Recovered/Resolved]
  - Pruritus [Recovered/Resolved]
  - Hypersensitivity [Recovered/Resolved]
  - Fatigue [Recovered/Resolved]
  - Skin exfoliation [Recovered/Resolved]
